FAERS Safety Report 8990756 (Version 1)
Quarter: 2012Q4

REPORT INFORMATION
  Report Type: Report from Study
  Country: FR (occurrence: FR)
  Receive Date: 20121228
  Receipt Date: 20121228
  Transmission Date: 20130627
  Serious: Yes (Hospitalization)
  Sender: FDA-Public Use
  Company Number: FR-ROCHE-1171912

PATIENT
  Age: 78 Year
  Sex: Male

DRUGS (7)
  1. RITUXIMAB [Suspect]
     Indication: CHRONIC LYMPHOCYTIC LEUKAEMIA
     Route: 041
     Dates: start: 20120111
  2. RITUXIMAB [Suspect]
     Dosage: Day one of second cure
     Route: 041
     Dates: start: 20120208
  3. RITUXIMAB [Suspect]
     Dosage: Day 14 of second cure
     Route: 041
     Dates: start: 20120222
  4. CYCLOPHOSPHAMIDE [Suspect]
     Indication: CHRONIC LYMPHOCYTIC LEUKAEMIA
     Route: 002
  5. CYCLOPHOSPHAMIDE [Suspect]
     Route: 002
     Dates: start: 20120208, end: 20120210
  6. FLUDARABINE PHOSPHATE [Suspect]
     Indication: CHRONIC LYMPHOCYTIC LEUKAEMIA
     Route: 002
  7. FLUDARABINE PHOSPHATE [Suspect]
     Route: 002
     Dates: start: 20120208, end: 20120210

REACTIONS (1)
  - Renal impairment [Unknown]
